FAERS Safety Report 22333793 (Version 6)
Quarter: 2023Q4

REPORT INFORMATION
  Report Type: Spontaneous
  Country: US (occurrence: US)
  Receive Date: 20230517
  Receipt Date: 20231016
  Transmission Date: 20240110
  Serious: No
  Sender: FDA-Public Use
  Company Number: US-KYOWAKIRIN-2023BKK007110

PATIENT

DRUGS (7)
  1. CRYSVITA [Suspect]
     Active Substance: BUROSUMAB-TWZA
     Indication: Hereditary hypophosphataemic rickets
     Dosage: 90 MG, 1X/2 WEEKS (3ML)
     Route: 058
  2. CRYSVITA [Suspect]
     Active Substance: BUROSUMAB-TWZA
     Dosage: 90 MG, 1X/2 WEEKS (3ML)
     Route: 058
  3. CRYSVITA [Suspect]
     Active Substance: BUROSUMAB-TWZA
     Dosage: 90 MG, 1X/2 WEEKS (3ML)
     Route: 058
  4. CRYSVITA [Suspect]
     Active Substance: BUROSUMAB-TWZA
     Dosage: UNK
     Route: 058
     Dates: start: 20230913
  5. CRYSVITA [Suspect]
     Active Substance: BUROSUMAB-TWZA
     Dosage: 90 MG, 1X/2 WEEKS (3ML)
     Route: 058
  6. NAPROXEN [Concomitant]
     Active Substance: NAPROXEN
     Indication: Product used for unknown indication
     Dosage: 375 MG
     Route: 065
  7. PROBIOTICS NOS [Concomitant]
     Active Substance: PROBIOTICS NOS
     Indication: Product used for unknown indication
     Dosage: UNK(10 B CELL)
     Route: 065

REACTIONS (19)
  - Weight decreased [Unknown]
  - Urinary tract infection [Unknown]
  - Weight increased [Unknown]
  - Ear infection [Unknown]
  - Epicondylitis [Unknown]
  - Productive cough [Unknown]
  - Tonsillitis [Recovering/Resolving]
  - Nausea [Unknown]
  - Back pain [Unknown]
  - Arthralgia [Unknown]
  - Pain [Unknown]
  - Pain [Recovering/Resolving]
  - Pruritus [Recovered/Resolved]
  - Flank pain [Not Recovered/Not Resolved]
  - Rash [Recovering/Resolving]
  - Insomnia [Unknown]
  - Rhinorrhoea [Unknown]
  - Overdose [Unknown]
  - Inappropriate schedule of product administration [Unknown]

NARRATIVE: CASE EVENT DATE: 20230801
